FAERS Safety Report 16164543 (Version 1)
Quarter: 2019Q2

REPORT INFORMATION
  Report Type: Spontaneous
  Country: US (occurrence: US)
  Receive Date: 20190405
  Receipt Date: 20190405
  Transmission Date: 20190711
  Serious: Yes (Other)
  Sender: FDA-Public Use
  Company Number: US-JNJFOC-20190404170

PATIENT
  Age: 57 Year
  Sex: Male

DRUGS (2)
  1. INVOKANA [Suspect]
     Active Substance: CANAGLIFLOZIN
     Indication: PRODUCT USED FOR UNKNOWN INDICATION
     Dosage: 300 MG 1 TABLET EVERY DAY AND 100 MG 1 TABLET TWICE A DAY
     Route: 048
  2. INVOKANA [Suspect]
     Active Substance: CANAGLIFLOZIN
     Indication: PRODUCT USED FOR UNKNOWN INDICATION
     Route: 048

REACTIONS (5)
  - Foot amputation [Unknown]
  - Cellulitis [Recovered/Resolved]
  - Necrosis [Unknown]
  - Gangrene [Unknown]
  - Skin ulcer [Unknown]

NARRATIVE: CASE EVENT DATE: 201709
